FAERS Safety Report 5857336-7 (Version None)
Quarter: 2008Q3

REPORT INFORMATION
  Report Type: 
  Country: None (occurrence: None)
  Receive Date: 20080826
  Receipt Date: 20080818
  Transmission Date: 20090109
  Serious: Yes (Hospitalization)
  Sender: FDA-Public Use
  Company Number: SE-TEVA-176003ISR

PATIENT
  Sex: Female

DRUGS (3)
  1. METHOTREXATE SODIUM TABLETS, 2.5 MG [Suspect]
     Indication: RHEUMATOID ARTHRITIS
     Route: 048
     Dates: start: 20070130, end: 20071010
  2. KETOPROFEN [Concomitant]
     Route: 048
  3. FOLIC ACID [Concomitant]
     Route: 048

REACTIONS (1)
  - SEPSIS [None]
